FAERS Safety Report 4989668-9 (Version None)
Quarter: 2006Q2

REPORT INFORMATION
  Report Type: 
  Country: None (occurrence: None)
  Receive Date: 20060426
  Receipt Date: 20060424
  Transmission Date: 20061013
  Serious: Yes (Other)
  Sender: FDA-Public Use
  Company Number: 007258

PATIENT
  Age: 7 Year
  Sex: Male
  Weight: 22.2 kg

DRUGS (1)
  1. DEXTROAMPHETAMINE SULFATE(DEXTROAMPHETAMINE SULFATE) TABLET,  5MG [Suspect]
     Indication: ATTENTION DEFICIT/HYPERACTIVITY DISORDER
     Dosage: 5 MG, BID, ORAL
     Route: 048
     Dates: start: 20060125, end: 20060423

REACTIONS (1)
  - SELF INJURIOUS BEHAVIOUR [None]
